FAERS Safety Report 9745181 (Version 1)
Quarter: 2013Q4

REPORT INFORMATION
  Report Type: Spontaneous
  Country: US (occurrence: US)
  Receive Date: 20131211
  Receipt Date: 20131211
  Transmission Date: 20140711
  Serious: No
  Sender: FDA-Public Use
  Company Number: US-PFIZER INC-2013351509

PATIENT
  Sex: Female

DRUGS (2)
  1. VENLAFAXINE HCL [Suspect]
     Dosage: 1 DF, DAILY (1 CAPSULE A DAY, THOUGHT THAT SHE WAS TAKING 37 MG)
  2. VENLAFAXINE HCL [Suspect]
     Dosage: 2 DF, UNK (7TH DAY TOOK TWO CAPSULES)

REACTIONS (2)
  - Intentional drug misuse [Unknown]
  - Feeling hot [Unknown]
